FAERS Safety Report 10031784 (Version 2)
Quarter: 2014Q1

REPORT INFORMATION
  Report Type: Spontaneous
  Country: FR (occurrence: FR)
  Receive Date: 20140324
  Receipt Date: 20140324
  Transmission Date: 20141002
  Serious: Yes (Hospitalization, Other)
  Sender: FDA-Public Use
  Company Number: FR-PFIZER INC-2014053788

PATIENT
  Age: 75 Year
  Sex: Male

DRUGS (1)
  1. EFFEXOR [Suspect]
     Dosage: 75 MG, DAILY

REACTIONS (6)
  - Anaemia of chronic disease [Unknown]
  - Fall [Unknown]
  - Vertigo [Unknown]
  - Dizziness [Unknown]
  - Tremor [Unknown]
  - Hypotension [Unknown]
